FAERS Safety Report 10080441 (Version 1)
Quarter: 2014Q2

REPORT INFORMATION
  Report Type: Report from Study
  Country: US (occurrence: US)
  Receive Date: 20140416
  Receipt Date: 20140416
  Transmission Date: 20141212
  Serious: Yes (Hospitalization)
  Sender: FDA-Public Use
  Company Number: US-ROCHE-1383946

PATIENT
  Age: 54 Year
  Sex: Female

DRUGS (1)
  1. ERIVEDGE [Suspect]
     Indication: BASAL CELL CARCINOMA
     Route: 048
     Dates: start: 20140214, end: 20140222

REACTIONS (4)
  - Pancreatitis [Recovering/Resolving]
  - Ulcer [Not Recovered/Not Resolved]
  - Oesophageal infection [Unknown]
  - Vomiting [Recovered/Resolved]
